FAERS Safety Report 10395957 (Version 1)
Quarter: 2014Q1

REPORT INFORMATION
  Report Type: Spontaneous
  Country: US (occurrence: None)
  Receive Date: 20130724
  Receipt Date: 20130724
  Transmission Date: 20141002
  Serious: Yes (Disabling)
  Sender: FDA-Public Use
  Company Number: PHEH2012US008480

PATIENT
  Age: 60 Year
  Sex: Female

DRUGS (3)
  1. RECLAST (ZOLEDRONATE) SOLUTION FOR INJECTION [Suspect]
     Indication: OSTEOPOROSIS
     Dosage: UNK UKN, UNK, INTRAVENOUS?02/--2011 TO UNK
     Route: 042
     Dates: end: 2011
  2. VITAMIN D3 (COLECALCIFEROL) [Concomitant]
  3. CALCIUM [Concomitant]

REACTIONS (6)
  - Pain [None]
  - Muscular weakness [None]
  - Gait disturbance [None]
  - Groin pain [None]
  - Myalgia [None]
  - Arthralgia [None]
